FAERS Safety Report 11320137 (Version 9)
Quarter: 2016Q2

REPORT INFORMATION
  Report Type: Spontaneous
  Country: US (occurrence: US)
  Receive Date: 20150729
  Receipt Date: 20160602
  Transmission Date: 20160815
  Serious: Yes (Hospitalization)
  Sender: FDA-Public Use
  Company Number: US-ASTRAZENECA-2015SE72524

PATIENT
  Sex: Female

DRUGS (2)
  1. LYNPARZA [Suspect]
     Active Substance: OLAPARIB
     Indication: OVARIAN CANCER
     Route: 048
     Dates: start: 20150708
  2. LYNPARZA [Suspect]
     Active Substance: OLAPARIB
     Indication: OVARIAN CANCER
     Route: 048

REACTIONS (14)
  - Hypertension [Not Recovered/Not Resolved]
  - Pharyngitis streptococcal [Recovering/Resolving]
  - Chest pain [Recovered/Resolved]
  - Constipation [Recovered/Resolved]
  - Muscular weakness [Unknown]
  - Tremor [Unknown]
  - Cough [Not Recovered/Not Resolved]
  - Fluid retention [Not Recovered/Not Resolved]
  - Nasopharyngitis [Unknown]
  - Urticaria [Unknown]
  - Heart rate increased [Unknown]
  - Vomiting [Unknown]
  - Anaemia [Recovering/Resolving]
  - Urinary tract infection [Not Recovered/Not Resolved]
